FAERS Safety Report 9476843 (Version 1)
Quarter: 2013Q3

REPORT INFORMATION
  Report Type: Spontaneous
  Country: US (occurrence: US)
  Receive Date: 20130826
  Receipt Date: 20130826
  Transmission Date: 20140515
  Serious: Yes (Other)
  Sender: FDA-Public Use
  Company Number: US-ACTAVIS-2013-14591

PATIENT
  Age: 70 Year
  Sex: Female

DRUGS (4)
  1. FENTANYL [Suspect]
     Indication: PAIN
     Dosage: 25 MCG/HR, DAILY
     Route: 062
     Dates: start: 20130726
  2. LYRICA [Concomitant]
     Indication: PAIN
     Dosage: 1 DF, DAILY
     Route: 048
  3. LOSARTAN [Concomitant]
     Indication: PRODUCT USED FOR UNKNOWN INDICATION
     Dosage: 1 DF, DAILY
     Route: 048
  4. SYNTHROID [Concomitant]
     Indication: HYPOTHYROIDISM
     Dosage: UNK, DAILY
     Route: 048

REACTIONS (2)
  - Cardiac flutter [Not Recovered/Not Resolved]
  - Drug ineffective [Not Recovered/Not Resolved]
